FAERS Safety Report 4450583-0 (Version None)
Quarter: 2004Q3

REPORT INFORMATION
  Report Type: 
  Country: None (occurrence: None)
  Receive Date: 20040913
  Receipt Date: 20040630
  Transmission Date: 20050211
  Serious: No
  Sender: FDA-Public Use
  Company Number: 2004-BP-05278BP(0)

PATIENT
  Age: 61 Year
  Sex: Male

DRUGS (13)
  1. SPIRIVA [Suspect]
     Indication: ASTHMA
     Dosage: 18 MCH (18 MCG), IH
     Route: 055
     Dates: start: 20040617
  2. FOSAMAX [Concomitant]
  3. HYTRIN [Concomitant]
  4. REMERON [Concomitant]
  5. NASONEX [Concomitant]
  6. POTASSIUM CHLORIDE [Concomitant]
  7. LASIX [Concomitant]
  8. SYNTHROID [Concomitant]
  9. FIBERCON (POLYCARBOPHIL CALCIUM) [Concomitant]
  10. NEXIUM [Concomitant]
  11. PLENDIL [Concomitant]
  12. AEROBID [Concomitant]
  13. ARTHROTEC [Concomitant]

REACTIONS (4)
  - ARTHRITIS [None]
  - CONSTIPATION [None]
  - DEPRESSION [None]
  - HEART RATE INCREASED [None]
